FAERS Safety Report 4450414-9 (Version None)
Quarter: 2004Q3

REPORT INFORMATION
  Report Type: 
  Country: None (occurrence: None)
  Receive Date: 20040915
  Receipt Date: 20040826
  Transmission Date: 20050211
  Serious: Yes (Hospitalization)
  Sender: FDA-Public Use
  Company Number: 6010433

PATIENT
  Age: 68 Year

DRUGS (6)
  1. BICOR (BISOPROLOL) [Suspect]
     Indication: CARDIAC FAILURE
     Dosage: SEE IMAGE
     Dates: start: 20040811, end: 20040826
  2. BICOR (BISOPROLOL) [Suspect]
     Indication: CARDIAC FAILURE
     Dosage: SEE IMAGE
     Dates: start: 20040716
  3. TRIATACE (TABLETS) (RAMIPRIL) [Concomitant]
  4. ENDUR (TABLETS) (METHYCLOTHIAZIDE) [Concomitant]
  5. SOLPRIN (TABLETS) (ACETYLSALICYLATE CALCIUM) [Concomitant]
  6. ARATAC (TABLETS) (AMIODARONE HYDROCHLORIDE) [Concomitant]

REACTIONS (1)
  - VISUAL ACUITY REDUCED [None]
